FAERS Safety Report 6277447-4 (Version None)
Quarter: 2009Q3

REPORT INFORMATION
  Report Type: 
  Country: None (occurrence: None)
  Receive Date: 20090717
  Receipt Date: 20090717
  Transmission Date: 20100115
  Serious: No
  Sender: FDA-Public Use
  Company Number: None

PATIENT
  Age: 43 Year
  Sex: Female
  Weight: 91.6266 kg

DRUGS (1)
  1. SERTRALINE HCL [Suspect]
     Indication: ANXIETY
     Dosage: 1 DAY PO
     Route: 048
     Dates: start: 20090706, end: 20090715

REACTIONS (4)
  - ANXIETY [None]
  - CHEST PAIN [None]
  - DYSPNOEA [None]
  - PRODUCT SUBSTITUTION ISSUE [None]
